FAERS Safety Report 18747206 (Version 2)
Quarter: 2021Q1

REPORT INFORMATION
  Report Type: Spontaneous
  Country: US (occurrence: US)
  Receive Date: 20210115
  Receipt Date: 20210119
  Transmission Date: 20210419
  Serious: No
  Sender: FDA-Public Use
  Company Number: US-PFIZER INC-2021022021

PATIENT
  Age: 79 Year
  Sex: Female
  Weight: 77.11 kg

DRUGS (2)
  1. XALATAN [Suspect]
     Active Substance: LATANOPROST
     Indication: GLAUCOMA
     Dosage: 2 DROPS, ONCE A DAY (ONE DROP IN EACH EYE BEFORE BEDTIME)
     Route: 047
  2. RHOPRESSA [Suspect]
     Active Substance: NETARSUDIL MESYLATE
     Indication: GLAUCOMA
     Dosage: 2 DROPS, ONCE A DAY (ONE DROP IN EACH EYE AT NIGHT)
     Route: 047

REACTIONS (4)
  - Myalgia [Unknown]
  - Ocular hyperaemia [Unknown]
  - Paraesthesia [Unknown]
  - Pain in extremity [Unknown]
